FAERS Safety Report 4613292-0 (Version None)
Quarter: 2005Q1

REPORT INFORMATION
  Report Type: 
  Country: None (occurrence: None)
  Receive Date: 20050315
  Receipt Date: 20050301
  Transmission Date: 20050727
  Serious: Yes (Hospitalization)
  Sender: FDA-Public Use
  Company Number: 02100-JPN-05-0095

PATIENT
  Age: 70 Year
  Sex: Female

DRUGS (6)
  1. CILOSTAZOL [Suspect]
     Indication: CEREBRAL INFARCTION
     Dosage: 200 MG ORAL
     Route: 048
     Dates: start: 20040107, end: 20040402
  2. PHENOBARBITAL SODIUM [Concomitant]
  3. MEXILETINE HYDROCHLORIDE [Concomitant]
  4. LOSARTAN POTASSIUM [Concomitant]
  5. VALPROATE SODIUM [Concomitant]
  6. CYPROHEPTADINE HYDROCHLORIDE [Concomitant]

REACTIONS (8)
  - DECREASED APPETITE [None]
  - DEPRESSION [None]
  - GASTRIC ULCER HAEMORRHAGE [None]
  - HAEMATOCRIT ABNORMAL [None]
  - HAEMOGLOBIN ABNORMAL [None]
  - PLATELET COUNT INCREASED [None]
  - RED BLOOD CELL COUNT ABNORMAL [None]
  - STRESS [None]
